FAERS Safety Report 24564599 (Version 1)
Quarter: 2024Q4

REPORT INFORMATION
  Report Type: Spontaneous
  Country: IN (occurrence: IN)
  Receive Date: 20241030
  Receipt Date: 20241030
  Transmission Date: 20250114
  Serious: Yes (Other)
  Sender: ROCHE
  Company Number: IN-ROCHE-10000115860

PATIENT
  Age: 70 Year
  Sex: Male

DRUGS (1)
  1. ALECENSA [Suspect]
     Active Substance: ALECTINIB HYDROCHLORIDE
     Indication: Metastatic squamous cell carcinoma
     Route: 048

REACTIONS (4)
  - Off label use [Unknown]
  - Protein total decreased [Unknown]
  - Throat cancer [Unknown]
  - Speech disorder [Unknown]
